FAERS Safety Report 6471532 (Version 18)
Quarter: 2012Q4

REPORT INFORMATION
  Report Type: 
  Country: US (occurrence: US)
  Receive Date: 20071119
  Receipt Date: 20121228
  Transmission Date: 20130627
  Serious: Yes (Life-Threatening, Congenital Anomaly, Other)
  Sender: FDA-Public Use
  Company Number: US-PFIZER INC-2007095360

PATIENT
  Sex: Female
  Weight: 3 kg

DRUGS (7)
  1. ZOLOFT [Suspect]
     Indication: DEPRESSION
     Dosage: UNK
     Route: 064
     Dates: start: 2001, end: 2007
  2. PRENATAL VITAMINS [Concomitant]
     Dosage: UNK
     Route: 064
  3. RHOGAM [Concomitant]
     Dosage: UNK
     Route: 064
     Dates: start: 20050207
  4. NYSTATIN [Concomitant]
     Dosage: UNK
     Route: 064
  5. TYLENOL [Concomitant]
     Dosage: UNK
     Route: 064
  6. CALCIUM [Concomitant]
     Dosage: UNK
     Route: 064
  7. PROZAC [Concomitant]
     Dosage: UNK
     Route: 064

REACTIONS (12)
  - Foetal exposure during pregnancy [Unknown]
  - Congenital anomaly [Unknown]
  - Bicuspid aortic valve [Unknown]
  - Ventricular septal defect [Recovered/Resolved]
  - Coarctation of the aorta [Recovered/Resolved]
  - Patent ductus arteriosus [Unknown]
  - Aorta hypoplasia [Unknown]
  - Persistent foetal circulation [Unknown]
  - Atrial septal defect [Recovered/Resolved]
  - Aortic elongation [Recovered/Resolved]
  - Convulsion [Unknown]
  - Scar [Unknown]
